FAERS Safety Report 9680767 (Version 2)
Quarter: 2014Q1

REPORT INFORMATION
  Report Type: Report from Study
  Country: JP (occurrence: JP)
  Receive Date: 20131111
  Receipt Date: 20140203
  Transmission Date: 20141002
  Serious: Yes (Hospitalization)
  Sender: FDA-Public Use
  Company Number: JP-JNJFOC-20131100716

PATIENT
  Age: 41 Year
  Sex: Female
  Weight: 40 kg

DRUGS (17)
  1. STELARA [Suspect]
     Indication: PUSTULAR PSORIASIS
     Route: 058
     Dates: start: 20120821, end: 20120821
  2. STELARA [Suspect]
     Indication: PUSTULAR PSORIASIS
     Route: 058
     Dates: start: 20120918, end: 20120918
  3. STELARA [Suspect]
     Indication: PUSTULAR PSORIASIS
     Route: 058
     Dates: start: 20121211, end: 20121211
  4. STELARA [Suspect]
     Indication: PUSTULAR PSORIASIS
     Route: 058
     Dates: start: 20130926
  5. STELARA [Suspect]
     Indication: PUSTULAR PSORIASIS
     Route: 058
     Dates: start: 20130704, end: 20130704
  6. STELARA [Suspect]
     Indication: PUSTULAR PSORIASIS
     Route: 058
     Dates: start: 20130226, end: 20130226
  7. TRAMACET [Concomitant]
     Indication: OSTEOARTHRITIS
     Route: 048
     Dates: start: 20120306, end: 20121105
  8. DOVONEX [Concomitant]
     Indication: PUSTULAR PSORIASIS
     Route: 061
  9. ANTEBATE [Concomitant]
     Indication: PUSTULAR PSORIASIS
     Dosage: Q.S.
     Route: 061
  10. ALMETA [Concomitant]
     Indication: PUSTULAR PSORIASIS
     Dosage: Q.S.
     Route: 061
  11. LOXONIN [Concomitant]
     Indication: OSTEOARTHRITIS
     Route: 048
  12. SEFMAZON [Concomitant]
     Route: 065
     Dates: start: 20130427, end: 20130507
  13. KEFRAL [Concomitant]
     Route: 048
     Dates: start: 20130507, end: 20130610
  14. MEROPENEM [Concomitant]
     Route: 065
     Dates: start: 20130611, end: 20130620
  15. BAKTAR [Concomitant]
     Route: 048
     Dates: start: 20130620
  16. ZYVOX [Concomitant]
     Route: 048
     Dates: start: 20130620, end: 20130709
  17. COCARL [Concomitant]
     Route: 048
     Dates: start: 20130716

REACTIONS (2)
  - Arthritis bacterial [Recovered/Resolved]
  - Sepsis [Recovered/Resolved]
